FAERS Safety Report 18431197 (Version 2)
Quarter: 2020Q4

REPORT INFORMATION
  Report Type: Spontaneous
  Country: AU (occurrence: AU)
  Receive Date: 20201027
  Receipt Date: 20201217
  Transmission Date: 20210114
  Serious: Yes (Hospitalization)
  Sender: FDA-Public Use
  Company Number: AU-ABBVIE-20K-008-3587014-00

PATIENT
  Age: 67 Year
  Sex: Male

DRUGS (5)
  1. APOMORPHINE [Suspect]
     Active Substance: APOMORPHINE
     Indication: PRODUCT USED FOR UNKNOWN INDICATION
     Route: 058
  2. NORDIP [Concomitant]
     Active Substance: AMLODIPINE BESYLATE
     Indication: BLOOD PRESSURE MANAGEMENT
  3. MAGNESIUM ASPARTATE [Concomitant]
     Active Substance: MAGNESIUM ASPARTATE
     Indication: MINERAL SUPPLEMENTATION
     Dosage: ELEMENTAL MG 37.4MG, (MAG-SUP) 500 MG TABLETS?2 TABLETS AT NIGHT
  4. DUODOPA [Suspect]
     Active Substance: CARBIDOPA\LEVODOPA
     Indication: PARKINSON^S DISEASE
     Dosage: 9 HOURS
     Route: 050
     Dates: start: 20200804, end: 2020
  5. DUODOPA [Suspect]
     Active Substance: CARBIDOPA\LEVODOPA
     Dosage: 15 HOURS
     Route: 050
     Dates: start: 2020

REACTIONS (6)
  - Peritonitis [Recovered/Resolved]
  - Stoma site pain [Unknown]
  - Hallucination [Unknown]
  - Stoma site erythema [Unknown]
  - Gait disturbance [Recovering/Resolving]
  - Device dislocation [Unknown]

NARRATIVE: CASE EVENT DATE: 2020
